FAERS Safety Report 24371064 (Version 9)
Quarter: 2025Q4

REPORT INFORMATION
  Report Type: Spontaneous
  Country: US (occurrence: US)
  Receive Date: 20240927
  Receipt Date: 20251002
  Transmission Date: 20260117
  Serious: Yes (Other)
  Sender: MERCK SHARP & DOHME LLC
  Company Number: US-009507513-2409USA007908

PATIENT
  Sex: Female
  Weight: 83 kg

DRUGS (44)
  1. WINREVAIR [Suspect]
     Active Substance: SOTATERCEPT-CSRK
     Route: 065
  2. WINREVAIR [Suspect]
     Active Substance: SOTATERCEPT-CSRK
  3. WINREVAIR [Suspect]
     Active Substance: SOTATERCEPT-CSRK
  4. WINREVAIR [Suspect]
     Active Substance: SOTATERCEPT-CSRK
  5. VERQUVO [Suspect]
     Active Substance: VERICIGUAT
     Indication: Product used for unknown indication
     Dosage: DOSE DESCRIPTION : UNK
     Route: 048
  6. SOTATERCEPT [Concomitant]
     Active Substance: SOTATERCEPT
  7. LORATADINE [Concomitant]
     Active Substance: LORATADINE
  8. PREDNISONE [Concomitant]
     Active Substance: PREDNISONE
  9. Acetyl-l-carnitine HCL [Concomitant]
  10. VITAMINS [Concomitant]
     Active Substance: VITAMINS
  11. HYDROXYZINE HYDROCHLORIDE [Concomitant]
     Active Substance: HYDROXYZINE HYDROCHLORIDE
  12. ENTRESTO [Suspect]
     Active Substance: SACUBITRIL\VALSARTAN
     Indication: Product used for unknown indication
     Dosage: DOSE DESCRIPTION : 49/51 (UNITS NOT PROVIDED)
     Route: 065
  13. TYVASO DPI [Suspect]
     Active Substance: TREPROSTINIL
     Indication: Pulmonary arterial hypertension
     Route: 055
     Dates: start: 202409
  14. TYVASO DPI [Suspect]
     Active Substance: TREPROSTINIL
     Indication: Pulmonary arterial hypertension
     Dosage: DOSE DESCRIPTION : 16 UG, QID?DAILY DOSE : 64 MICROGRAM
     Route: 055
     Dates: start: 20240819, end: 202409
  15. TYVASO DPI [Suspect]
     Active Substance: TREPROSTINIL
     Indication: Pulmonary arterial hypertension
     Dosage: DOSE DESCRIPTION : 32 UG, BID?DAILY DOSE : 64 MICROGRAM
     Route: 055
     Dates: start: 202409, end: 202409
  16. TADALAFIL [Suspect]
     Active Substance: TADALAFIL
     Indication: Product used for unknown indication
     Dosage: DOSE DESCRIPTION : UNK
     Route: 065
     Dates: end: 2024
  17. ADEMPAS [Suspect]
     Active Substance: RIOCIGUAT
     Indication: Product used for unknown indication
     Dosage: DOSE DESCRIPTION : 1 MILLIGRAM, TID?DAILY DOSE : 3 MILLIGRAM
     Route: 048
  18. ADEMPAS [Suspect]
     Active Substance: RIOCIGUAT
     Indication: Product used for unknown indication
     Dosage: DOSE DESCRIPTION : UNK
     Route: 065
     Dates: start: 2024, end: 2024
  19. ADEMPAS [Suspect]
     Active Substance: RIOCIGUAT
     Indication: Product used for unknown indication
     Dosage: UNK
     Dates: start: 20240905
  20. CLONIDINE HYDROCHLORIDE [Concomitant]
     Active Substance: CLONIDINE HYDROCHLORIDE
     Dosage: DOSE DESCRIPTION : UNK
  21. ASPIRIN [Concomitant]
     Active Substance: ASPIRIN
  22. CONVALLARIA MAJALIS;CRATAEGUS LAEVIGATA;PROXYPHYLLINE [Concomitant]
  23. FIBER LAX [Concomitant]
     Active Substance: CALCIUM POLYCARBOPHIL
     Dosage: DOSE DESCRIPTION : UNK
  24. COREG [Concomitant]
     Active Substance: CARVEDILOL
  25. CRESTOR [Concomitant]
     Active Substance: ROSUVASTATIN CALCIUM
  26. PROTONIX [Concomitant]
     Active Substance: PANTOPRAZOLE SODIUM
  27. OPSUMIT [Suspect]
     Active Substance: MACITENTAN
  28. OPSUMIT [Suspect]
     Active Substance: MACITENTAN
     Dosage: DOSE DESCRIPTION : 10 MILLIGRAM
  29. HYDROXYCHLOROQUINE SULFATE [Concomitant]
     Active Substance: HYDROXYCHLOROQUINE SULFATE
  30. LEVOTHYROXINE SODIUM [Concomitant]
     Active Substance: LEVOTHYROXINE SODIUM
  31. MELATONIN [Concomitant]
     Active Substance: MELATONIN
  32. IRON [Concomitant]
     Active Substance: IRON
  33. TRAZODONE HCL [Concomitant]
     Active Substance: TRAZODONE HYDROCHLORIDE
  34. HYDRALAZINE HCL [Concomitant]
     Active Substance: HYDRALAZINE HYDROCHLORIDE
  35. TYLENOL [Concomitant]
     Active Substance: ACETAMINOPHEN
  36. COLCHICINE [Concomitant]
     Active Substance: COLCHICINE
  37. COLACE [Concomitant]
     Active Substance: DOCUSATE SODIUM
     Dosage: DOSE DESCRIPTION : UNK
  38. NOXZEMA [Concomitant]
     Active Substance: SALICYLIC ACID
  39. CARVEDILOL [Concomitant]
     Active Substance: CARVEDILOL
  40. OMEGA 3 [Concomitant]
     Active Substance: CAPSAICIN
  41. TYVASO [Concomitant]
     Active Substance: TREPROSTINIL
  42. UNSPECIFIED INGREDIENT [Suspect]
     Active Substance: UNSPECIFIED INGREDIENT
     Route: 065
  43. UNSPECIFIED INGREDIENT [Suspect]
     Active Substance: UNSPECIFIED INGREDIENT
     Route: 065
  44. ROSUVASTATIN CALCIUM [Concomitant]
     Active Substance: ROSUVASTATIN CALCIUM

REACTIONS (44)
  - Nephrolithiasis [Unknown]
  - Blood pressure fluctuation [Recovered/Resolved]
  - Palpitations [Recovered/Resolved]
  - Drug interaction [Unknown]
  - Headache [Recovering/Resolving]
  - Palpitations [Recovered/Resolved]
  - Back pain [Not Recovered/Not Resolved]
  - Neck pain [Recovered/Resolved]
  - Joint stiffness [Recovered/Resolved]
  - Dizziness [Not Recovered/Not Resolved]
  - Blood pressure decreased [Unknown]
  - Vision blurred [Recovering/Resolving]
  - Head discomfort [Recovering/Resolving]
  - Contraindicated product administered [Unknown]
  - Faeces discoloured [Unknown]
  - Pain [Unknown]
  - Rash pruritic [Unknown]
  - Scratch [Unknown]
  - Abdominal distension [Unknown]
  - Localised oedema [Unknown]
  - Feeling abnormal [Unknown]
  - Weight decreased [Unknown]
  - Chest pain [Unknown]
  - Cough [Unknown]
  - Renal pain [Unknown]
  - Fatigue [Unknown]
  - Blood urine present [Unknown]
  - Product preparation issue [Unknown]
  - Asthenia [Unknown]
  - Diarrhoea [Not Recovered/Not Resolved]
  - Abdominal pain [Unknown]
  - Hypertension [Unknown]
  - Throat irritation [Unknown]
  - Gait inability [Unknown]
  - Heart rate increased [Unknown]
  - Illness [Unknown]
  - Fungal skin infection [Unknown]
  - Vomiting [Not Recovered/Not Resolved]
  - Urticaria [Unknown]
  - Joint swelling [Unknown]
  - Hypotension [Unknown]
  - Drug intolerance [Unknown]
  - Blood pressure systolic increased [Unknown]
  - Weight increased [Unknown]

NARRATIVE: CASE EVENT DATE: 20240101
